FAERS Safety Report 4356499-2 (Version None)
Quarter: 2004Q2

REPORT INFORMATION
  Report Type: 
  Country: None (occurrence: None)
  Receive Date: 20040506
  Receipt Date: 20040426
  Transmission Date: 20050107
  Serious: Yes (Hospitalization)
  Sender: FDA-Public Use
  Company Number: US-JNJFOC-20040405544

PATIENT
  Age: 51 Year
  Sex: Female
  Weight: 107.9561 kg

DRUGS (19)
  1. INFLIXIMAB         (INFLIXIMAB, RECOMBINANT) [Suspect]
     Indication: RHEUMATOID ARTHRITIS
     Dosage: INTRAVENOUS
     Route: 042
     Dates: start: 20010817
  2. PLAQUENIL [Concomitant]
  3. SULFASALAZINE [Concomitant]
  4. VITAMIN B12 [Concomitant]
  5. FOLIC ACID [Concomitant]
  6. AMITRIPTYLINE HCL [Concomitant]
  7. ATENOLOL [Concomitant]
  8. AVAPRO [Concomitant]
  9. ASPIRIN [Concomitant]
  10. CELEXA [Concomitant]
  11. TEMAZEPAM [Concomitant]
  12. PREDNISONE [Concomitant]
  13. METHOTREXATE [Concomitant]
  14. LODINE XL [Concomitant]
  15. PREMARIN (ESTROGENS CONUUGATED) [Concomitant]
  16. NEURONTIN [Concomitant]
  17. PREVACID [Concomitant]
  18. DETROL LA (TOLTERODINE L-TARTRATE) [Concomitant]
  19. ........... [Concomitant]

REACTIONS (10)
  - ANAEMIA [None]
  - ARTHRALGIA [None]
  - CHEST PAIN [None]
  - FAECAL OCCULT BLOOD POSITIVE [None]
  - PELVIC FRACTURE [None]
  - PELVIC PAIN [None]
  - PUBIC RAMI FRACTURE [None]
  - PYREXIA [None]
  - RED BLOOD CELL SEDIMENTATION RATE INCREASED [None]
  - SINUS TACHYCARDIA [None]
